FAERS Safety Report 24917819 (Version 1)
Quarter: 2025Q1

REPORT INFORMATION
  Report Type: Spontaneous
  Country: US (occurrence: US)
  Receive Date: 20250203
  Receipt Date: 20250203
  Transmission Date: 20250409
  Serious: Yes (Hospitalization)
  Sender: VERTEX
  Company Number: US-VERTEX PHARMACEUTICALS-2025-001653

PATIENT
  Age: 17 Year
  Sex: Female

DRUGS (19)
  1. TRIKAFTA [Suspect]
     Active Substance: ELEXACAFTOR\IVACAFTOR\TEZACAFTOR
     Indication: Cystic fibrosis
     Route: 048
  2. ALBUTEROL [Concomitant]
     Active Substance: ALBUTEROL
  3. SODIUM CHLORIDE [Concomitant]
     Active Substance: SODIUM CHLORIDE
     Route: 055
  4. FLUTICASONE [Concomitant]
     Active Substance: FLUTICASONE
     Route: 045
  5. CETIRIZINE [Concomitant]
     Active Substance: CETIRIZINE HYDROCHLORIDE
  6. PANCRELIPASE [Concomitant]
     Active Substance: PANCRELIPASE
  7. POLYETHYLENE GLYCOL 3350 [Concomitant]
     Active Substance: POLYETHYLENE GLYCOL 3350
  8. DOCUSATE SODIUM\SENNOSIDE A\SENNOSIDE B [Concomitant]
     Active Substance: DOCUSATE SODIUM\SENNOSIDE A\SENNOSIDE B
  9. FAMOTIDINE [Concomitant]
     Active Substance: FAMOTIDINE
  10. OMEPRAZOLE [Concomitant]
     Active Substance: OMEPRAZOLE
  11. URSODIOL [Concomitant]
     Active Substance: URSODIOL
  12. ONDANSETRON [Concomitant]
     Active Substance: ONDANSETRON
  13. CULTURELLE [Concomitant]
     Active Substance: LACTOBACILLUS RHAMNOSUS
  14. DROSPIRENONE [Concomitant]
     Active Substance: DROSPIRENONE
     Indication: Von Willebrand^s disease
  15. TRANEXAMIC ACID [Concomitant]
     Active Substance: TRANEXAMIC ACID
     Indication: Von Willebrand^s disease
  16. FERROUS SULFATE [Concomitant]
     Active Substance: FERROUS SULFATE
     Indication: Von Willebrand^s disease
  17. SERTRALINE [Concomitant]
     Active Substance: SERTRALINE HYDROCHLORIDE
  18. MIRTAZAPINE [Concomitant]
     Active Substance: MIRTAZAPINE
  19. LURASIDONE [Concomitant]
     Active Substance: LURASIDONE

REACTIONS (1)
  - Food allergy [Recovering/Resolving]
